FAERS Safety Report 8152246-7 (Version None)
Quarter: 2012Q1

REPORT INFORMATION
  Report Type: 
  Country: None (occurrence: None)
  Receive Date: 20120221
  Receipt Date: 20111026
  Transmission Date: 20120608
  Serious: Yes (Other)
  Sender: FDA-Public Use
  Company Number: CA-JNJFOC-20110706328

PATIENT
  Sex: Female
  Weight: 79 kg

DRUGS (13)
  1. THYROID [Concomitant]
     Route: 042
  2. SYMBICORT [Concomitant]
  3. METHOTREXATE [Suspect]
     Indication: PRODUCT USED FOR UNKNOWN INDICATION
     Route: 065
  4. DIFFERIN [Concomitant]
  5. CALCIUM/MAGNESIUM [Concomitant]
  6. CELEBREX [Concomitant]
  7. RATIO-TRIACOMB 1% [Concomitant]
  8. CLINDASOL [Concomitant]
  9. VITAMIN B-12 [Concomitant]
     Route: 030
  10. MS CONTIN [Concomitant]
  11. REMICADE [Suspect]
     Indication: ANKYLOSING SPONDYLITIS
     Route: 042
     Dates: start: 20100803
  12. VITAMIN D [Concomitant]
  13. DOVOBET [Concomitant]

REACTIONS (3)
  - PULMONARY CONGESTION [None]
  - PAIN [None]
  - DYSPNOEA [None]
